FAERS Safety Report 14124964 (Version 6)
Quarter: 2018Q4

REPORT INFORMATION
  Report Type: Report from Study
  Country: FR (occurrence: FR)
  Receive Date: 20171025
  Receipt Date: 20181129
  Transmission Date: 20190204
  Serious: Yes (Hospitalization)
  Sender: FDA-Public Use
  Company Number: FR-B.I. PHARMACEUTICALS,INC./RIDGEFIELD-2017-BI-056560

PATIENT
  Age: 43 Year
  Sex: Male
  Weight: 62 kg

DRUGS (11)
  1. MOTILIUM [Concomitant]
     Active Substance: DOMPERIDONE
     Indication: SYSTEMIC SCLERODERMA
     Route: 048
     Dates: start: 2014
  2. INEXIUM [Concomitant]
     Active Substance: ESOMEPRAZOLE
     Indication: SYSTEMIC SCLERODERMA
     Route: 048
  3. UVEDOSE [Concomitant]
     Active Substance: CHOLECALCIFEROL
     Indication: SYSTEMIC SCLERODERMA
     Route: 058
  4. CORTANCYL [Concomitant]
     Active Substance: PREDNISONE
     Indication: SYSTEMIC SCLERODERMA
     Route: 048
     Dates: start: 20140624
  5. IMETH [Concomitant]
     Active Substance: METHOTREXATE SODIUM
     Indication: SYSTEMIC SCLERODERMA
     Route: 048
     Dates: start: 2013
  6. SPECIAFOLDINE [Concomitant]
     Active Substance: FOLIC ACID
     Indication: SYSTEMIC SCLERODERMA
     Route: 048
     Dates: start: 2013
  7. BIBF 1120 [Suspect]
     Active Substance: NINTEDANIB
     Indication: INTERSTITIAL LUNG DISEASE
  8. KETOPROFEN. [Concomitant]
     Active Substance: KETOPROFEN
     Indication: SYSTEMIC SCLERODERMA
     Route: 048
     Dates: start: 20160801
  9. BIBF 1120 [Suspect]
     Active Substance: NINTEDANIB
     Indication: SYSTEMIC SCLERODERMA
     Route: 048
     Dates: start: 20160530
  10. ESOMEPRAZOLE. [Concomitant]
     Active Substance: ESOMEPRAZOLE MAGNESIUM
     Indication: SYSTEMIC SCLERODERMA
     Route: 048
  11. LOXEN L P [Concomitant]
     Active Substance: NICARDIPINE HYDROCHLORIDE
     Indication: SYSTEMIC SCLERODERMA
     Route: 048
     Dates: start: 2013

REACTIONS (2)
  - Interstitial lung disease [Recovered/Resolved]
  - Systemic sclerosis pulmonary [Recovered/Resolved]

NARRATIVE: CASE EVENT DATE: 201707
